FAERS Safety Report 18606755 (Version 39)
Quarter: 2023Q4

REPORT INFORMATION
  Report Type: Report from Study
  Country: US (occurrence: US)
  Receive Date: 20201211
  Receipt Date: 20231228
  Transmission Date: 20240109
  Serious: Yes (Hospitalization, Other)
  Sender: FDA-Public Use
  Company Number: US-SHIRE-US201914610AA

PATIENT
  Age: 53 Year
  Sex: Female
  Weight: 72 kg

DRUGS (20)
  1. LANADELUMAB [Suspect]
     Active Substance: LANADELUMAB
     Indication: Immune system disorder
     Dosage: 300 MILLIGRAM, Q2WEEKS
     Route: 058
     Dates: start: 201807
  2. LANADELUMAB [Suspect]
     Active Substance: LANADELUMAB
     Indication: Hereditary angioedema
     Dosage: 2 MILLILITER, Q2WEEKS
     Route: 058
     Dates: start: 20181017
  3. LANADELUMAB [Suspect]
     Active Substance: LANADELUMAB
     Indication: Dermatitis atopic
     Dosage: 300 MILLIGRAM, Q2WEEKS
     Route: 058
     Dates: start: 20181018
  4. LANADELUMAB [Suspect]
     Active Substance: LANADELUMAB
     Indication: Dyshidrotic eczema
     Dosage: 2 MILLILITER, Q2WEEKS
     Route: 058
     Dates: start: 20181022
  5. LANADELUMAB [Suspect]
     Active Substance: LANADELUMAB
     Dosage: UNK UNK, Q2WEEKS
     Route: 058
     Dates: start: 201810
  6. LANADELUMAB [Suspect]
     Active Substance: LANADELUMAB
     Dosage: 300 MILLIGRAM, Q2WEEKS
     Route: 058
     Dates: start: 20181113
  7. LANADELUMAB [Suspect]
     Active Substance: LANADELUMAB
     Dosage: 300 MILLIGRAM
     Route: 058
     Dates: start: 2018
  8. LANADELUMAB [Suspect]
     Active Substance: LANADELUMAB
     Dosage: UNK UNK, Q2WEEKS
     Route: 058
     Dates: start: 202207
  9. LANADELUMAB [Suspect]
     Active Substance: LANADELUMAB
     Dosage: 300 MILLIGRAM, Q2WEEKS
     Route: 050
  10. LANADELUMAB [Suspect]
     Active Substance: LANADELUMAB
     Dosage: 300 MILLIGRAM, Q2WEEKS
     Route: 058
  11. FIRAZYR [Suspect]
     Active Substance: ICATIBANT ACETATE
     Indication: Hereditary angioedema
     Dosage: 30 MILLIGRAM
     Route: 058
     Dates: start: 20120514
  12. FIRAZYR [Suspect]
     Active Substance: ICATIBANT ACETATE
     Indication: Hereditary angioedema
     Dosage: 30 MILLIGRAM
     Route: 058
     Dates: start: 20120514
  13. FIRAZYR [Suspect]
     Active Substance: ICATIBANT ACETATE
     Indication: Immune system disorder
     Dosage: 30 MILLIGRAM
     Route: 058
     Dates: start: 201504
  14. FIRAZYR [Suspect]
     Active Substance: ICATIBANT ACETATE
     Indication: Immune system disorder
     Dosage: 30 MILLIGRAM
     Route: 058
     Dates: start: 201504
  15. FIRAZYR [Suspect]
     Active Substance: ICATIBANT ACETATE
     Indication: Dermatitis atopic
     Dosage: 30 MILLIGRAM
     Route: 058
     Dates: start: 20160127
  16. FIRAZYR [Suspect]
     Active Substance: ICATIBANT ACETATE
     Indication: Dermatitis atopic
     Dosage: 30 MILLIGRAM
     Route: 058
     Dates: start: 20160127
  17. FIRAZYR [Suspect]
     Active Substance: ICATIBANT ACETATE
     Indication: Dyshidrotic eczema
     Dosage: 30 MILLIGRAM
     Route: 058
     Dates: start: 20200415
  18. FIRAZYR [Suspect]
     Active Substance: ICATIBANT ACETATE
     Indication: Dyshidrotic eczema
     Dosage: 30 MILLIGRAM
     Route: 058
     Dates: start: 20200415
  19. DUPIXENT [Concomitant]
     Active Substance: DUPILUMAB
     Indication: Dermatitis atopic
     Dosage: UNK
     Route: 065
  20. DUPIXENT [Concomitant]
     Active Substance: DUPILUMAB
     Indication: Dyshidrotic eczema

REACTIONS (8)
  - COVID-19 pneumonia [Recovering/Resolving]
  - Oxygen saturation decreased [Recovering/Resolving]
  - Urinary tract infection [Unknown]
  - Hereditary angioedema [Recovered/Resolved]
  - Trigger finger [Unknown]
  - Drug ineffective [Unknown]
  - Product dose omission issue [Unknown]
  - Inappropriate schedule of product administration [Unknown]

NARRATIVE: CASE EVENT DATE: 20190408
